FAERS Safety Report 5812812-8 (Version None)
Quarter: 2008Q3

REPORT INFORMATION
  Report Type: 
  Country: None (occurrence: None)
  Receive Date: 20080717
  Receipt Date: 20080527
  Transmission Date: 20090109
  Serious: No
  Sender: FDA-Public Use
  Company Number: US-BAYER-200824400NA

PATIENT
  Age: 22 Year
  Sex: Female

DRUGS (2)
  1. MIRENA [Suspect]
     Indication: CONTRACEPTION
     Route: 015
     Dates: start: 20071220
  2. NECOIZINE [Concomitant]
     Indication: VERTIGO

REACTIONS (9)
  - ABDOMINAL PAIN LOWER [None]
  - DEPRESSION [None]
  - DYSPAREUNIA [None]
  - MIGRAINE [None]
  - MOOD ALTERED [None]
  - NIGHT SWEATS [None]
  - PYREXIA [None]
  - VAGINAL HAEMORRHAGE [None]
  - VERTIGO [None]
